FAERS Safety Report 11217772 (Version 2)
Quarter: 2015Q3

REPORT INFORMATION
  Report Type: Spontaneous
  Country: US (occurrence: US)
  Receive Date: 20150625
  Receipt Date: 20150820
  Transmission Date: 20151125
  Serious: No
  Sender: FDA-Public Use
  Company Number: US-AMGEN-USASP2015061604

PATIENT
  Age: 55 Year
  Sex: Female

DRUGS (1)
  1. ENBREL [Suspect]
     Active Substance: ETANERCEPT
     Indication: RHEUMATOID ARTHRITIS
     Dosage: 50 MG, QWK
     Route: 058
     Dates: start: 20150513

REACTIONS (8)
  - Anxiety [Unknown]
  - Musculoskeletal disorder [Unknown]
  - Asthenia [Unknown]
  - Muscle spasms [Unknown]
  - Depressed mood [Unknown]
  - Condition aggravated [Unknown]
  - Tremor [Unknown]
  - Balance disorder [Unknown]
